FAERS Safety Report 4399611-1 (Version None)
Quarter: 2004Q3

REPORT INFORMATION
  Report Type: 
  Country: None (occurrence: None)
  Receive Date: 20040712
  Receipt Date: 20040625
  Transmission Date: 20050211
  Serious: Yes (Hospitalization)
  Sender: FDA-Public Use
  Company Number: 2004-BP-02942NB

PATIENT
  Age: 72 Year
  Sex: Male

DRUGS (1)
  1. MOBIC [Suspect]
     Indication: OSTEOARTHRITIS
     Dosage: 10 MG; PO
     Route: 048
     Dates: end: 20040405

REACTIONS (1)
  - COLITIS ULCERATIVE [None]
